FAERS Safety Report 15989516 (Version 2)
Quarter: 2019Q1

REPORT INFORMATION
  Report Type: Report from Study
  Country: CO (occurrence: CO)
  Receive Date: 20190221
  Receipt Date: 20190307
  Transmission Date: 20190418
  Serious: Yes (Death, Hospitalization, Other)
  Sender: FDA-Public Use
  Company Number: CO-ASTELLAS-2018US053496

PATIENT
  Age: 58 Year
  Sex: Female

DRUGS (2)
  1. TACROLIMUS. [Suspect]
     Active Substance: TACROLIMUS
     Indication: RENAL TRANSPLANT
     Dosage: 10 MG (2 DF OF  5 MG) ONCE DAILY
     Route: 048
     Dates: start: 20080120
  2. TACROLIMUS. [Suspect]
     Active Substance: TACROLIMUS
     Dosage: 2 MG (2 DF OF 1 MG), ONCE DAILY
     Route: 048
     Dates: start: 20080120

REACTIONS (5)
  - General physical health deterioration [Unknown]
  - Blood pressure increased [Unknown]
  - Chest pain [Unknown]
  - Heart valve stenosis [Unknown]
  - Death [Fatal]

NARRATIVE: CASE EVENT DATE: 201811
